FAERS Safety Report 10466545 (Version 1)
Quarter: 2014Q3

REPORT INFORMATION
  Report Type: Report from Study
  Country: US (occurrence: US)
  Receive Date: 20140922
  Receipt Date: 20140922
  Transmission Date: 20150326
  Serious: Yes (Death)
  Sender: FDA-Public Use
  Company Number: PHEH2014US018813

PATIENT
  Age: 47 Year
  Sex: Male

DRUGS (1)
  1. TOBI [Suspect]
     Active Substance: TOBRAMYCIN
     Indication: CYSTIC FIBROSIS
     Dosage: 300 MG, BID (FOR 28 DAYS CONTINOUSLY)
     Route: 055
     Dates: start: 20130608, end: 20140425

REACTIONS (1)
  - Death [Fatal]

NARRATIVE: CASE EVENT DATE: 20140429
